FAERS Safety Report 11419936 (Version 1)
Quarter: 2015Q3

REPORT INFORMATION
  Report Type: Report from Study
  Country: FR (occurrence: FR)
  Receive Date: 20150826
  Receipt Date: 20150826
  Transmission Date: 20151125
  Serious: Yes (Hospitalization)
  Sender: FDA-Public Use
  Company Number: FR-SA-2015SA077620

PATIENT
  Age: 65 Year
  Sex: Male

DRUGS (2)
  1. CAMPATH [Suspect]
     Active Substance: ALEMTUZUMAB
     Indication: T-CELL LYMPHOMA
     Route: 058
     Dates: start: 201505, end: 201506
  2. CAMPATH [Suspect]
     Active Substance: ALEMTUZUMAB
     Indication: T-CELL LYMPHOMA
     Route: 058
     Dates: start: 201502, end: 201503

REACTIONS (3)
  - Pneumonitis [Recovered/Resolved]
  - Cytomegalovirus infection [Recovered/Resolved]
  - Influenza [Recovered/Resolved]

NARRATIVE: CASE EVENT DATE: 201503
